FAERS Safety Report 6731405-1 (Version None)
Quarter: 2010Q2

REPORT INFORMATION
  Report Type: 
  Country: None (occurrence: None)
  Receive Date: 20100518
  Receipt Date: 20100518
  Transmission Date: 20101027
  Serious: Yes (Life-Threatening)
  Sender: FDA-Public Use
  Company Number: None

PATIENT
  Age: 75 Year
  Sex: Male
  Weight: 77.7 kg

DRUGS (1)
  1. IOHEXOL [Suspect]
     Indication: ABDOMEN SCAN
     Dosage: 100 ML ONCE IV
     Route: 042
     Dates: start: 20100428, end: 20100428

REACTIONS (2)
  - CARDIAC ARREST [None]
  - RESPIRATORY ARREST [None]
